FAERS Safety Report 16190350 (Version 1)
Quarter: 2019Q2

REPORT INFORMATION
  Report Type: Spontaneous
  Country: GB (occurrence: GB)
  Receive Date: 20190412
  Receipt Date: 20190412
  Transmission Date: 20190711
  Serious: Yes (Death)
  Sender: FDA-Public Use
  Company Number: GB-TEVA-2019-GB-1035927

PATIENT
  Age: 67 Year
  Sex: Male

DRUGS (11)
  1. SIMVASTATIN. [Suspect]
     Active Substance: SIMVASTATIN
     Dosage: 20 MILLIGRAM DAILY; NIGHT
  2. FOSTAIR [Suspect]
     Active Substance: BECLOMETHASONE\FORMOTEROL
     Dosage: 2 DOSAGE FORMS DAILY; 100MICROGRAMS/DOSE 6MICROGRAMS/DOSE
     Route: 055
  3. FERROUS FUMARATE [Suspect]
     Active Substance: FERROUS FUMARATE
     Dosage: 420 MILLIGRAM DAILY;
  4. BRALTUS [Suspect]
     Active Substance: TIOTROPIUM BROMIDE
     Dosage: 10 MICROGRAM DAILY; AT THE SAME TIME OF DAY.
     Route: 055
  5. VITAMIN B COMPOUND STRONG [Suspect]
     Active Substance: NIACINAMIDE\PYRIDOXINE HYDROCHLORIDE\RIBOFLAVIN\THIAMINE HYDROCHLORIDE
     Dosage: 1 DOSAGE FORMS DAILY;
  6. XARELTO [Suspect]
     Active Substance: RIVAROXABAN
     Dosage: 20 MILLIGRAM DAILY; WITH FOOD
  7. VENTOLIN [Suspect]
     Active Substance: ALBUTEROL SULFATE
     Dosage: 1-4 PUFFS IN VOLUMATIC IF VERY WHEEZY ONLY
     Route: 065
  8. FUROSEMIDE. [Suspect]
     Active Substance: FUROSEMIDE
     Dosage: 160 MILLIGRAM DAILY;
  9. OMEPRAZOLE. [Suspect]
     Active Substance: OMEPRAZOLE
     Dosage: 20 MILLIGRAM DAILY;
  10. PARACETAMOL [Suspect]
     Active Substance: ACETAMINOPHEN
     Dosage: ONE TO BE TAKEN EVERY 4-6 HOURS UP TO FOUR TIMES A DAY
  11. SPIRONOLACTONE. [Suspect]
     Active Substance: SPIRONOLACTONE
     Dosage: 2 DOSAGE FORMS DAILY; EACH MORNING

REACTIONS (1)
  - Sudden death [Fatal]
